FAERS Safety Report 5190749-8 (Version None)
Quarter: 2006Q4

REPORT INFORMATION
  Report Type: 
  Country: None (occurrence: None)
  Receive Date: 20061222
  Receipt Date: 20061215
  Transmission Date: 20070319
  Serious: Yes (Life-Threatening)
  Sender: FDA-Public Use
  Company Number: BR-ROCHE-475378

PATIENT
  Age: 44 Year
  Sex: Male

DRUGS (2)
  1. RIBAVIRIN [Suspect]
     Route: 065
     Dates: start: 20040215
  2. PEG-INTRON [Suspect]
     Dosage: DOSE ALSO REPORTED AS (1.5MCG/KG/WEEK)
     Route: 065
     Dates: start: 20040215

REACTIONS (10)
  - BLOOD CHOLESTEROL INCREASED [None]
  - DRUG INTOLERANCE [None]
  - FATIGUE [None]
  - FOCAL GLOMERULOSCLEROSIS [None]
  - HAEMATURIA [None]
  - IDIOPATHIC THROMBOCYTOPENIC PURPURA [None]
  - JOINT SWELLING [None]
  - NEPHROPATHY TOXIC [None]
  - PROTEINURIA [None]
  - PYREXIA [None]
